FAERS Safety Report 18511182 (Version 1)
Quarter: 2020Q4

REPORT INFORMATION
  Report Type: Spontaneous
  Country: US (occurrence: US)
  Receive Date: 20201117
  Receipt Date: 20201117
  Transmission Date: 20210114
  Serious: Yes (Other)
  Sender: FDA-Public Use
  Company Number: US-CADILA HEALTHCARE LIMITED-US-ZYDUS-058119

PATIENT

DRUGS (1)
  1. ACETAZOLAMIDE. [Suspect]
     Active Substance: ACETAZOLAMIDE
     Indication: IDIOPATHIC INTRACRANIAL HYPERTENSION
     Dosage: 500 MILLIEQUIVALENT PER GRAM, BID (DIVIDED TWICE A DAY)
     Route: 064

REACTIONS (4)
  - Respiratory depression [Recovered/Resolved]
  - Autism spectrum disorder [Unknown]
  - Metabolic acidosis [Recovered/Resolved]
  - Foetal exposure during pregnancy [Unknown]
